FAERS Safety Report 14981965 (Version 1)
Quarter: 2018Q2

REPORT INFORMATION
  Report Type: Spontaneous
  Country: TR (occurrence: TR)
  Receive Date: 20180607
  Receipt Date: 20180607
  Transmission Date: 20180711
  Serious: Yes (Other)
  Sender: FDA-Public Use
  Company Number: TR-009507513-1805TUR015183

PATIENT
  Sex: Male

DRUGS (1)
  1. INTERFERON ALFA-2B [Suspect]
     Active Substance: INTERFERON ALFA-2B

REACTIONS (2)
  - Metastases to central nervous system [Unknown]
  - Disease progression [Unknown]
